FAERS Safety Report 18846920 (Version 1)
Quarter: 2021Q1

REPORT INFORMATION
  Report Type: Report from Study
  Country: CA (occurrence: CA)
  Receive Date: 20210204
  Receipt Date: 20210204
  Transmission Date: 20210419
  Serious: Yes (Other)
  Sender: FDA-Public Use
  Company Number: CA-MYLANLABS-2020M1093621

PATIENT
  Age: 52 Year
  Sex: Male

DRUGS (6)
  1. OLANZAPINE SANDOZ [Concomitant]
     Active Substance: OLANZAPINE
     Dosage: 1 TABLET NIGHTLY AT BEDTIME
     Route: 048
  2. CLOZAPINE. [Suspect]
     Active Substance: CLOZAPINE
     Indication: SCHIZOPHRENIA
     Dosage: 200 MILLIGRAM, HS
     Route: 048
     Dates: start: 20200924, end: 20201020
  3. PMS?ATENOLOL [Concomitant]
     Dosage: TAKE 1 TABLET DAILY
     Route: 048
  4. ABILIFY MAINTENA [Concomitant]
     Active Substance: ARIPIPRAZOLE
     Dosage: INJECT 400 MG EVERY 21 DAYS
     Route: 030
  5. OLANZAPINE SANDOZ [Concomitant]
     Active Substance: OLANZAPINE
     Dosage: TAKE 1 TABLET IN THE MORNING
     Route: 048
  6. PMS?CLONAZEPAM?R [Concomitant]
     Dosage: 1 TABLET TWICE A DAY
     Route: 048

REACTIONS (8)
  - Neutrophil count increased [Recovered/Resolved]
  - Myocarditis [Recovered/Resolved]
  - Myelocyte count increased [Unknown]
  - Monocyte count increased [Recovered/Resolved]
  - Eosinophilia [Recovered/Resolved]
  - Multi-organ disorder [Recovered/Resolved]
  - White blood cell count increased [Recovered/Resolved]
  - Influenza like illness [Recovered/Resolved]

NARRATIVE: CASE EVENT DATE: 2020
